FAERS Safety Report 22312256 (Version 1)
Quarter: 2023Q2

REPORT INFORMATION
  Report Type: Spontaneous
  Country: US (occurrence: US)
  Receive Date: 20230512
  Receipt Date: 20230512
  Transmission Date: 20230721
  Serious: No
  Sender: FDA-Public Use
  Company Number: US-BIOGEN-2020BI00923437

PATIENT
  Sex: Female

DRUGS (14)
  1. TECFIDERA [Suspect]
     Active Substance: DIMETHYL FUMARATE
     Indication: Multiple sclerosis
     Route: 050
     Dates: start: 20160607
  2. TECFIDERA [Suspect]
     Active Substance: DIMETHYL FUMARATE
     Route: 050
     Dates: start: 20150108, end: 2020
  3. SPIRONOLACTONE [Concomitant]
     Active Substance: SPIRONOLACTONE
     Route: 050
  4. Triamcinolon [Concomitant]
     Route: 050
  5. TRETINOIN [Concomitant]
     Active Substance: TRETINOIN
     Route: 050
  6. CLOBETASOL [Concomitant]
     Active Substance: CLOBETASOL
     Route: 050
  7. ALUMINUM CHLORIDE [Concomitant]
     Active Substance: ALUMINUM CHLORIDE
     Route: 050
  8. GABAPENTIN [Concomitant]
     Active Substance: GABAPENTIN
     Route: 050
  9. EPINEPHRINE [Concomitant]
     Active Substance: EPINEPHRINE
     Route: 050
  10. ESOMEPRAZOLE [Concomitant]
     Active Substance: ESOMEPRAZOLE
     Route: 050
  11. ALBUTEROL [Concomitant]
     Active Substance: ALBUTEROL
     Route: 050
  12. DEXTROAMPHET SACCHARAT, AMPHET ASPARTATE, DEXTROAMPHET SULFATE AND AMP [Concomitant]
     Active Substance: AMPHETAMINE ASPARTATE\AMPHETAMINE ASPARTATE MONOHYDRATE\AMPHETAMINE SULFATE\DEXTROAMPHETAMINE SACCHA
     Route: 050
  13. TRAZODONE [Concomitant]
     Active Substance: TRAZODONE HYDROCHLORIDE
     Route: 050
  14. RESTASIS [Concomitant]
     Active Substance: CYCLOSPORINE
     Route: 050

REACTIONS (7)
  - Mobility decreased [Unknown]
  - Paraesthesia [Unknown]
  - Fatigue [Unknown]
  - Skin wrinkling [Not Recovered/Not Resolved]
  - Fall [Recovered/Resolved]
  - Alopecia [Unknown]
  - Flushing [Unknown]

NARRATIVE: CASE EVENT DATE: 20180101
